FAERS Safety Report 5502572-2 (Version None)
Quarter: 2007Q4

REPORT INFORMATION
  Report Type: 
  Country: None (occurrence: None)
  Receive Date: 20071031
  Receipt Date: 20071023
  Transmission Date: 20080405
  Serious: Yes (Other)
  Sender: FDA-Public Use
  Company Number: PHBS2006BE19473

PATIENT
  Sex: Female
  Weight: 55 kg

DRUGS (7)
  1. ZOMETA [Suspect]
     Indication: MULTIPLE MYELOMA
     Dosage: 4MG, MONTHLY
     Dates: start: 20021001, end: 20040101
  2. AREDIA [Suspect]
     Indication: MULTIPLE MYELOMA
     Dosage: 90MG, MONTHLY
     Dates: start: 19991201, end: 20020601
  3. ANTINEOPLASTIC AGENTS [Concomitant]
  4. CORTICOSTEROIDS [Concomitant]
  5. ANTIBIOTICS [Concomitant]
  6. GROWTH FACTORS [Concomitant]
  7. BONEFOS [Suspect]
     Dosage: 1500 MG/DAY
     Dates: start: 19970101, end: 19990101

REACTIONS (2)
  - BONE DEBRIDEMENT [None]
  - OSTEONECROSIS [None]
